FAERS Safety Report 5220761-1 (Version None)
Quarter: 2007Q1

REPORT INFORMATION
  Report Type: 
  Country: None (occurrence: None)
  Receive Date: 20070126
  Receipt Date: 20070119
  Transmission Date: 20070707
  Serious: Yes (Other)
  Sender: FDA-Public Use
  Company Number: AU-JNJFOC-20070105292

PATIENT
  Sex: Female
  Weight: 52 kg

DRUGS (1)
  1. INFLIXIMAB [Suspect]
     Indication: DRUG USE FOR UNKNOWN INDICATION
     Route: 042

REACTIONS (3)
  - ABDOMINAL DISTENSION [None]
  - PYREXIA [None]
  - RASH PRURITIC [None]
